FAERS Safety Report 4322964-7 (Version None)
Quarter: 2004Q1

REPORT INFORMATION
  Report Type: 
  Country: None (occurrence: None)
  Receive Date: 20040325
  Receipt Date: 20040216
  Transmission Date: 20041129
  Serious: Yes (Death, Hospitalization, Other)
  Sender: FDA-Public Use
  Company Number: PHBS2004ES02261

PATIENT
  Sex: Female

DRUGS (1)
  1. NEORAL [Suspect]
     Indication: RENAL TRANSPLANT
     Route: 048

REACTIONS (13)
  - ABDOMINAL PAIN UPPER [None]
  - CHOLECYSTITIS [None]
  - COAGULOPATHY [None]
  - DIABETES MELLITUS INADEQUATE CONTROL [None]
  - FEELING ABNORMAL [None]
  - GALLBLADDER OPERATION [None]
  - GALLBLADDER PERFORATION [None]
  - GASTROINTESTINAL HAEMORRHAGE [None]
  - MALAISE [None]
  - MULTI-ORGAN FAILURE [None]
  - NERVOUSNESS [None]
  - RESPIRATORY FAILURE [None]
  - TREMOR [None]
